FAERS Safety Report 21211792 (Version 1)
Quarter: 2022Q3

REPORT INFORMATION
  Report Type: Spontaneous
  Country: US (occurrence: None)
  Receive Date: 20220812
  Receipt Date: 20220812
  Transmission Date: 20221026
  Serious: No
  Sender: FDA-Public Use
  Company Number: None

PATIENT
  Age: 44 Year
  Sex: Male
  Weight: 110 kg

DRUGS (1)
  1. LUMATEPERONE [Suspect]
     Active Substance: LUMATEPERONE
     Indication: Schizoaffective disorder
     Dosage: FREQUENCY : DAILY;?
     Route: 048
     Dates: start: 20220415, end: 20220512

REACTIONS (3)
  - Depression [None]
  - Dizziness [None]
  - Suicide attempt [None]

NARRATIVE: CASE EVENT DATE: 20220512
